FAERS Safety Report 5476760-8 (Version None)
Quarter: 2007Q4

REPORT INFORMATION
  Report Type: 
  Country: None (occurrence: None)
  Receive Date: 20071004
  Receipt Date: 20070926
  Transmission Date: 20080405
  Serious: Yes (Death)
  Sender: FDA-Public Use
  Company Number: US-BAXTER-2007BH007979

PATIENT
  Age: 20 Year
  Sex: Female

DRUGS (3)
  1. VINORELBINE TARTRATE [Suspect]
     Indication: HODGKIN'S DISEASE
     Route: 065
  2. GEMCITABINE HCL [Suspect]
     Indication: HODGKIN'S DISEASE
     Route: 065
  3. PEGYLATED LIPOSOMAL DOXORUBICIN [Suspect]
     Indication: HODGKIN'S DISEASE
     Route: 065

REACTIONS (1)
  - ACUTE RESPIRATORY DISTRESS SYNDROME [None]
